FAERS Safety Report 7185923-5 (Version None)
Quarter: 2010Q4

REPORT INFORMATION
  Report Type: 
  Country: None (occurrence: None)
  Receive Date: 20101222
  Receipt Date: 20101218
  Transmission Date: 20110411
  Serious: Yes (Other)
  Sender: FDA-Public Use
  Company Number: PHHY2010DE86746

PATIENT
  Age: 7 Year
  Sex: Female

DRUGS (13)
  1. METHOTREXATE [Suspect]
     Indication: ACUTE MYELOID LEUKAEMIA
     Dosage: 1000 MG/M2
     Route: 042
  2. METHOTREXATE [Suspect]
     Dosage: 10 TO 12MG
     Route: 037
  3. PREDNISONE [Suspect]
     Dosage: 60 MG/M2, 50 PERCENT
     Route: 048
  4. VINCRISTINE (NGX) [Suspect]
     Dosage: 1.5 MG/M2, 50 PERCENT
  5. CYTARABINE [Suspect]
     Dosage: 75 MG/M2, 50 PERCENT
  6. CYTARABINE [Suspect]
     Dosage: 66 PERCENT
  7. DAUNORUBICIN HCL [Suspect]
     Dosage: 30 MG/M2, 50 PERCENT
  8. ASPARAGINASE [Suspect]
     Dosage: 5000 IE/M2, 50 PERCENT
  9. MERCAPTOPURINE [Suspect]
     Dosage: 60 MG/M2, 50 PERCENT
  10. MERCAPTOPURINE [Suspect]
     Dosage: 10 TO 12 MG
     Route: 037
  11. MERCAPTOPURINE [Suspect]
     Dosage: 66 PERCENT
  12. MERCAPTOPURINE [Suspect]
     Dosage: 25 MG/M2
  13. CYCLOPHOSPHAMIDE [Suspect]
     Dosage: 1000 MG/M2

REACTIONS (2)
  - GASTROENTERITIS [None]
  - NEUTROPENIA [None]
